FAERS Safety Report 8214168-2 (Version None)
Quarter: 2012Q1

REPORT INFORMATION
  Report Type: 
  Country: None (occurrence: None)
  Receive Date: 20120316
  Receipt Date: 20120313
  Transmission Date: 20120608
  Serious: Yes (Hospitalization)
  Sender: FDA-Public Use
  Company Number: US-BAYER-2012-025362

PATIENT
  Age: 33 Year
  Sex: Female
  Weight: 72.2 kg

DRUGS (2)
  1. YASMIN [Suspect]
  2. YAZ [Suspect]

REACTIONS (1)
  - PULMONARY EMBOLISM [None]
